FAERS Safety Report 8223053-1 (Version None)
Quarter: 2012Q1

REPORT INFORMATION
  Report Type: 
  Country: None (occurrence: None)
  Receive Date: 20120321
  Receipt Date: 20120312
  Transmission Date: 20120608
  Serious: Yes (Hospitalization, Other)
  Sender: FDA-Public Use
  Company Number: US-ASTRAZENECA-2011SE32270

PATIENT
  Age: 43 Year
  Sex: Female

DRUGS (17)
  1. ZOCOR [Concomitant]
  2. AMBIEN [Concomitant]
  3. CLENIDINE [Concomitant]
  4. LASIX [Concomitant]
  5. CRESTOR [Concomitant]
  6. ROLAIDS [Concomitant]
  7. LISINOPRIL [Concomitant]
  8. IBUPROFEN (ADVIL) [Concomitant]
  9. CARVEDILOL [Concomitant]
  10. NEXIUM [Suspect]
     Indication: GASTROOESOPHAGEAL REFLUX DISEASE
     Route: 048
     Dates: start: 20030101
  11. SIMYASTIN [Concomitant]
  12. METFORMIN HCL [Concomitant]
  13. HYDROCODONE [Concomitant]
  14. LOVAZA [Concomitant]
  15. BISMUTH SUBSALICYLATE [Concomitant]
  16. FUROSEMIDE [Concomitant]
  17. XANAX [Concomitant]

REACTIONS (8)
  - ARTHRITIS [None]
  - MATERNAL DRUGS AFFECTING FOETUS [None]
  - ANKLE FRACTURE [None]
  - CHEST PAIN [None]
  - INSOMNIA [None]
  - BONE DISORDER [None]
  - INFECTION [None]
  - ABORTION SPONTANEOUS [None]
